FAERS Safety Report 11823897 (Version 2)
Quarter: 2016Q1

REPORT INFORMATION
  Report Type: Spontaneous
  Country: RU (occurrence: RU)
  Receive Date: 20151210
  Receipt Date: 20160104
  Transmission Date: 20160525
  Serious: Yes (Hospitalization, Other)
  Sender: FDA-Public Use
  Company Number: RU-JNJFOC-20151208168

PATIENT
  Age: 80 Year
  Sex: Female

DRUGS (9)
  1. CORDARONE [Concomitant]
     Active Substance: AMIODARONE HYDROCHLORIDE
     Route: 048
  2. MAGNESIUM SULFATE. [Concomitant]
     Active Substance: MAGNESIUM SULFATE
     Route: 042
  3. BISOPROLOL HEMIFUMARATE [Concomitant]
     Active Substance: BISOPROLOL FUMARATE
     Route: 048
  4. DIGOXIN. [Concomitant]
     Active Substance: DIGOXIN
     Route: 042
  5. XARELTO [Suspect]
     Active Substance: RIVAROXABAN
     Indication: ATRIAL FIBRILLATION
     Route: 048
     Dates: start: 20151125
  6. XARELTO [Suspect]
     Active Substance: RIVAROXABAN
     Indication: CEREBROVASCULAR ACCIDENT PROPHYLAXIS
     Route: 048
     Dates: start: 20151125
  7. SODIUM CHLORIDE. [Concomitant]
     Active Substance: SODIUM CHLORIDE
     Route: 042
  8. CAPOTEN [Suspect]
     Active Substance: CAPTOPRIL
     Indication: PRODUCT USED FOR UNKNOWN INDICATION
     Route: 048
  9. PHYSIOTENS [Concomitant]
     Active Substance: MOXONIDINE
     Route: 048

REACTIONS (9)
  - Platelet count decreased [Unknown]
  - Hospitalisation [Recovered/Resolved]
  - Platelet count decreased [Not Recovered/Not Resolved]
  - Atrial fibrillation [Recovered/Resolved]
  - Haemorrhagic disorder [Recovered/Resolved]
  - Subcutaneous haematoma [Recovered/Resolved]
  - Thrombocytopenia [Unknown]
  - Haemorrhage [Unknown]
  - Haemorrhage [Recovered/Resolved]

NARRATIVE: CASE EVENT DATE: 20150909
